FAERS Safety Report 10593171 (Version 1)
Quarter: 2014Q4

REPORT INFORMATION
  Report Type: Spontaneous
  Country: US (occurrence: None)
  Receive Date: 20141118
  Receipt Date: 20141118
  Transmission Date: 20150529
  Serious: No
  Sender: FDA-Public Use
  Company Number: None

PATIENT
  Age: 63 Year
  Sex: Male

DRUGS (2)
  1. HAIR AND SCALP ANTI-DANDRUFF [Suspect]
     Active Substance: PYRITHIONE ZINC
     Indication: DANDRUFF
     Dosage: SHAMPOO
     Dates: start: 20141022, end: 20141024
  2. HAIR AND SCALP ANTI-DANDRUFF [Suspect]
     Active Substance: PYRITHIONE ZINC
     Indication: PRURITUS
     Dosage: SHAMPOO
     Dates: start: 20141022, end: 20141024

REACTIONS (2)
  - Liquid product physical issue [None]
  - Eye irritation [None]

NARRATIVE: CASE EVENT DATE: 20141022
